FAERS Safety Report 11006704 (Version 1)
Quarter: 2015Q2

REPORT INFORMATION
  Report Type: Spontaneous
  Country: US (occurrence: US)
  Receive Date: 20150409
  Receipt Date: 20150409
  Transmission Date: 20150821
  Serious: No
  Sender: FDA-Public Use
  Company Number: US-ALLERGAN-1421597US

PATIENT
  Sex: Female

DRUGS (1)
  1. LATISSE [Suspect]
     Active Substance: BIMATOPROST
     Indication: GROWTH OF EYELASHES
     Dosage: UNK, QHS
     Route: 061
     Dates: start: 20141001, end: 20141004

REACTIONS (7)
  - Vision blurred [Recovering/Resolving]
  - Erythema of eyelid [Recovering/Resolving]
  - Eye pruritus [Recovering/Resolving]
  - Eyelid irritation [Recovering/Resolving]
  - Eyelids pruritus [Recovering/Resolving]
  - Blepharal pigmentation [Recovering/Resolving]
  - Scleral hyperaemia [Recovering/Resolving]
